FAERS Safety Report 5040544-5 (Version None)
Quarter: 2006Q2

REPORT INFORMATION
  Report Type: 
  Country: None (occurrence: None)
  Receive Date: 20060630
  Receipt Date: 20050126
  Transmission Date: 20061013
  Serious: Yes (Death)
  Sender: FDA-Public Use
  Company Number: US-ABBOTT-05P-163-0288315-00

PATIENT
  Sex: Male

DRUGS (11)
  1. RITONAVIR SOFT GELATIN CAPSULES [Suspect]
     Indication: HIV INFECTION
     Route: 048
     Dates: start: 20040105, end: 20040203
  2. LAMIVUDINE [Concomitant]
     Indication: HIV INFECTION
     Dates: start: 20030909
  3. TENOFOVIR [Concomitant]
     Indication: HIV INFECTION
     Dates: start: 20030909
  4. ATOVAQUONE [Concomitant]
     Indication: ANTIBIOTIC PROPHYLAXIS
     Dates: start: 20030101
  5. AZITHROMYCIN [Concomitant]
     Indication: ANTIBIOTIC PROPHYLAXIS
     Dates: start: 20010101
  6. DRONABINOL [Concomitant]
     Indication: DECREASED APPETITE
     Dates: start: 20021021
  7. FLUCONAZOLE [Concomitant]
     Indication: MENINGITIS CRYPTOCOCCAL
     Dates: start: 20030101
  8. LEVOFLOXACIN [Concomitant]
     Indication: OTITIS MEDIA
     Dates: start: 20031031
  9. LISINOPRIL [Concomitant]
     Indication: HYPERTENSION
     Dates: start: 20030101
  10. PHENYTOIN [Concomitant]
     Indication: CONVULSION
     Dates: start: 20030101
  11. TIPRANAVIR [Concomitant]
     Indication: HIV INFECTION
     Route: 048
     Dates: start: 20040105, end: 20040203

REACTIONS (2)
  - DEATH [None]
  - DRUG INEFFECTIVE [None]
